FAERS Safety Report 5205799-2 (Version None)
Quarter: 2007Q1

REPORT INFORMATION
  Report Type: 
  Country: None (occurrence: None)
  Receive Date: 20070111
  Receipt Date: 20070102
  Transmission Date: 20070707
  Serious: Yes (Other)
  Sender: FDA-Public Use
  Company Number: GB-ROCHE-477524

PATIENT
  Age: 23 Year
  Sex: Female
  Weight: 44 kg

DRUGS (6)
  1. MYCOPHENOLATE MOFETIL [Suspect]
     Indication: LUNG TRANSPLANT
     Route: 048
     Dates: start: 20061122
  2. VALGANCICLOVIR HCL [Interacting]
     Route: 048
     Dates: start: 20061114, end: 20061128
  3. AZATHIOPRINE [Concomitant]
     Indication: LUNG TRANSPLANT
     Route: 048
     Dates: start: 20061111, end: 20061121
  4. CYCLOSPORINE [Concomitant]
     Indication: LUNG TRANSPLANT
     Route: 048
     Dates: start: 20061111, end: 20061115
  5. PREDNISOLONE [Concomitant]
     Indication: LUNG TRANSPLANT
     Route: 048
     Dates: start: 20061113
  6. TACROLIMUS [Concomitant]
     Indication: LUNG TRANSPLANT
     Route: 048
     Dates: start: 20061115

REACTIONS (5)
  - BLOOD CREATININE INCREASED [None]
  - BLOOD UREA INCREASED [None]
  - DRUG INTERACTION [None]
  - DRUG TOXICITY [None]
  - RENAL FAILURE [None]
